FAERS Safety Report 13170413 (Version 1)
Quarter: 2017Q1

REPORT INFORMATION
  Report Type: Spontaneous
  Country: US (occurrence: US)
  Receive Date: 20170131
  Receipt Date: 20170131
  Transmission Date: 20170428
  Serious: Yes (Life-Threatening, Hospitalization, Other)
  Sender: FDA-Public Use
  Company Number: US-PFIZER INC-2017041131

PATIENT
  Sex: Female

DRUGS (1)
  1. EMBEDA [Suspect]
     Active Substance: MORPHINE SULFATE\NALTREXONE HYDROCHLORIDE
     Dosage: UNK
     Dates: start: 20160116, end: 20160430

REACTIONS (7)
  - Nightmare [Unknown]
  - Somnambulism [Unknown]
  - Blindness [Unknown]
  - Blood pressure abnormal [Unknown]
  - Carotid artery disease [Unknown]
  - Pancreatic disorder [Unknown]
  - Coma [Unknown]
